FAERS Safety Report 5608606-9 (Version None)
Quarter: 2008Q1

REPORT INFORMATION
  Report Type: 
  Country: None (occurrence: None)
  Receive Date: 20080111
  Receipt Date: 20070207
  Transmission Date: 20080703
  Serious: Yes (Other)
  Sender: FDA-Public Use
  Company Number: HQWYE114208FEB07

PATIENT
  Sex: Female

DRUGS (7)
  1. PREMPRO [Suspect]
  2. ANOVLAR (ETHINYLESTRADIOL/NORETHISTERONE ACETATE, ) [Suspect]
  3. CYCRIN [Suspect]
  4. ESTRATEST [Suspect]
  5. FEMHRT [Suspect]
  6. PREFEST [Suspect]
  7. PREMPRO [Suspect]

REACTIONS (1)
  - BREAST CANCER [None]
